FAERS Safety Report 5871592-0 (Version None)
Quarter: 2008Q3

REPORT INFORMATION
  Report Type: 
  Country: None (occurrence: None)
  Receive Date: 20080905
  Receipt Date: 20080611
  Transmission Date: 20090109
  Serious: No
  Sender: FDA-Public Use
  Company Number: A0733178A

PATIENT
  Sex: Female

DRUGS (5)
  1. REQUIP [Suspect]
     Indication: RESTLESS LEGS SYNDROME
     Dosage: 2MG UNKNOWN
     Route: 048
     Dates: start: 20060101
  2. NEXIUM [Concomitant]
  3. TETRACYCLINE [Concomitant]
  4. VICODIN [Concomitant]
  5. LORAZEPAM [Concomitant]

REACTIONS (1)
  - SOMNOLENCE [None]
